FAERS Safety Report 8214283-3 (Version None)
Quarter: 2012Q1

REPORT INFORMATION
  Report Type: 
  Country: None (occurrence: None)
  Receive Date: 20120316
  Receipt Date: 20120308
  Transmission Date: 20120608
  Serious: Yes (Hospitalization)
  Sender: FDA-Public Use
  Company Number: US-BAYER-2012-023988

PATIENT
  Age: 50 Year
  Sex: Female
  Weight: 68.027 kg

DRUGS (6)
  1. YASMIN [Suspect]
     Indication: POSTMENOPAUSAL HAEMORRHAGE
  2. ZELNORM [Concomitant]
     Dosage: 6 MG, UNK
     Dates: start: 20050202, end: 20050318
  3. MEDROL [Concomitant]
     Dosage: UNK
     Route: 048
     Dates: start: 20050419
  4. LEVAQUIN [Concomitant]
     Indication: URINARY TRACT INFECTION
     Dosage: 500 MG, DAILY FOR 10 DAYS
     Route: 048
     Dates: start: 20050419
  5. LEVAQUIN [Concomitant]
     Indication: PLEURISY
  6. HYDRO-PC II SYRUP [Concomitant]
     Dosage: UNK
     Dates: start: 20050420

REACTIONS (1)
  - DEEP VEIN THROMBOSIS [None]
